FAERS Safety Report 7163216-X (Version None)
Quarter: 2010Q4

REPORT INFORMATION
  Report Type: 
  Country: None (occurrence: None)
  Receive Date: 20101215
  Receipt Date: 20100316
  Transmission Date: 20110411
  Serious: Yes (Other)
  Sender: FDA-Public Use
  Company Number: DE-PFIZER INC-2010023163

PATIENT
  Age: 80 Year
  Sex: Male

DRUGS (4)
  1. LYRICA [Suspect]
     Indication: NEURALGIA
     Dosage: 150 MG, 2X/DAY
     Route: 048
  2. CARBAMAZEPINE [Suspect]
     Dosage: 200 MG, 2X/DAY
     Route: 048
     Dates: start: 20100204, end: 20100101
  3. ASPIRIN [Concomitant]
     Indication: NEURALGIA
     Dosage: 100 MG, 1X/DAY
  4. LIPOIC ACID [Concomitant]
     Dosage: 600 MG, 1X/DAY
     Route: 048
     Dates: start: 20100204

REACTIONS (5)
  - APATHY [None]
  - DIZZINESS [None]
  - GAIT DISTURBANCE [None]
  - NEURALGIA [None]
  - SOMNOLENCE [None]
